FAERS Safety Report 12443033 (Version 1)
Quarter: 2016Q2

REPORT INFORMATION
  Report Type: Spontaneous
  Country: US (occurrence: None)
  Receive Date: 20160606
  Receipt Date: 20160606
  Transmission Date: 20160815
  Serious: No
  Sender: FDA-Public Use
  Company Number: None

PATIENT
  Sex: Male

DRUGS (2)
  1. METFORMIN [Suspect]
     Active Substance: METFORMIN HYDROCHLORIDE
  2. ADVIL [Suspect]
     Active Substance: IBUPROFEN

REACTIONS (6)
  - Blood glucose decreased [None]
  - Accident at work [None]
  - Stress [None]
  - Blood cholesterol increased [None]
  - Diarrhoea [None]
  - Peripheral swelling [None]
